FAERS Safety Report 8178962-9 (Version None)
Quarter: 2012Q1

REPORT INFORMATION
  Report Type: 
  Country: None (occurrence: None)
  Receive Date: 20120302
  Receipt Date: 20120227
  Transmission Date: 20120608
  Serious: No
  Sender: FDA-Public Use
  Company Number: US-BIOGENIDEC-2012BI007140

PATIENT
  Sex: Female

DRUGS (4)
  1. TYSABRI [Suspect]
     Indication: MULTIPLE SCLEROSIS
     Route: 042
     Dates: start: 20090227, end: 20100408
  2. AVONEX [Concomitant]
     Route: 030
     Dates: start: 20090201
  3. TYSABRI [Suspect]
     Route: 042
     Dates: start: 20110418
  4. AVONEX [Concomitant]
     Indication: MULTIPLE SCLEROSIS
     Route: 030
     Dates: start: 19991001, end: 20030213

REACTIONS (2)
  - EYE PAIN [None]
  - COORDINATION ABNORMAL [None]
